FAERS Safety Report 7413509-3 (Version None)
Quarter: 2011Q2

REPORT INFORMATION
  Report Type: 
  Country: None (occurrence: None)
  Receive Date: 20110405
  Receipt Date: 20110330
  Transmission Date: 20111010
  Serious: Yes (Hospitalization, Disabling, Other)
  Sender: FDA-Public Use
  Company Number: 2010SP020793

PATIENT
  Age: 34 Year
  Sex: Female
  Weight: 67.586 kg

DRUGS (6)
  1. NUVARING [Suspect]
  2. MULTI-VITAMIN [Concomitant]
  3. NUVARING [Suspect]
     Indication: PRODUCT USED FOR UNKNOWN INDICATION
     Dates: start: 20090310, end: 20090730
  4. NUVARING [Suspect]
  5. CLARITIN [Concomitant]
  6. ASPIRIN [Suspect]
     Indication: DEEP VEIN THROMBOSIS

REACTIONS (76)
  - URINARY TRACT INFECTION [None]
  - MUSCULOSKELETAL CHEST PAIN [None]
  - ABDOMINAL PAIN [None]
  - ERYTHEMA NODOSUM [None]
  - NOCTURIA [None]
  - HUMAN PAPILLOMA VIRUS TEST POSITIVE [None]
  - PALPITATIONS [None]
  - PERIORBITAL OEDEMA [None]
  - RHEUMATIC HEART DISEASE [None]
  - VISION BLURRED [None]
  - NAUSEA [None]
  - AORTIC EMBOLUS [None]
  - DEPRESSION [None]
  - OVARIAN CYST [None]
  - BRONCHITIS [None]
  - ANAEMIA [None]
  - VAGINAL INFECTION [None]
  - PELVIC PAIN [None]
  - TRICUSPID VALVE INCOMPETENCE [None]
  - PNEUMONIA VIRAL [None]
  - SWELLING FACE [None]
  - ASTHENIA [None]
  - DEEP VEIN THROMBOSIS [None]
  - RESTLESS LEGS SYNDROME [None]
  - DYSPNOEA PAROXYSMAL NOCTURNAL [None]
  - ARTHRALGIA [None]
  - INTERNATIONAL NORMALISED RATIO INCREASED [None]
  - WEIGHT DECREASED [None]
  - WEIGHT INCREASED [None]
  - INFLUENZA LIKE ILLNESS [None]
  - SMOKE SENSITIVITY [None]
  - SUPRAVENTRICULAR EXTRASYSTOLES [None]
  - BACK PAIN [None]
  - PULMONARY EMBOLISM [None]
  - FLANK PAIN [None]
  - CORONARY ARTERY THROMBOSIS [None]
  - MITRAL VALVE INCOMPETENCE [None]
  - SKIN PAPILLOMA [None]
  - CARDIOVASCULAR DISORDER [None]
  - RASH [None]
  - EPSTEIN-BARR VIRUS TEST POSITIVE [None]
  - PRESYNCOPE [None]
  - STREPTOCOCCUS TEST POSITIVE [None]
  - VENTRICULAR EXTRASYSTOLES [None]
  - ANXIETY [None]
  - HEART RATE IRREGULAR [None]
  - GENERAL PHYSICAL CONDITION ABNORMAL [None]
  - SLEEP APNOEA SYNDROME [None]
  - SNORING [None]
  - CONSTIPATION [None]
  - PRODUCT SUBSTITUTION ISSUE [None]
  - DYSPNOEA EXERTIONAL [None]
  - VOMITING [None]
  - HAEMATEMESIS [None]
  - DIZZINESS [None]
  - MUSCLE SPASMS [None]
  - VIRAL INFECTION [None]
  - IMPAIRED WORK ABILITY [None]
  - COUGH [None]
  - EYE SWELLING [None]
  - CHRONIC FATIGUE SYNDROME [None]
  - CYTOMEGALOVIRUS TEST POSITIVE [None]
  - HYPOKALAEMIA [None]
  - GAIT DISTURBANCE [None]
  - HIGH DENSITY LIPOPROTEIN INCREASED [None]
  - BACK INJURY [None]
  - DYSPNOEA [None]
  - NIGHT SWEATS [None]
  - LOBAR PNEUMONIA [None]
  - FIBRIN D DIMER INCREASED [None]
  - ARTHRITIS [None]
  - CARDIAC MURMUR [None]
  - PULMONARY VALVE INCOMPETENCE [None]
  - ARTERIOSCLEROSIS CORONARY ARTERY [None]
  - JOINT SWELLING [None]
  - HEART RATE INCREASED [None]
